FAERS Safety Report 12339178 (Version 4)
Quarter: 2017Q2

REPORT INFORMATION
  Report Type: Report from Study
  Country: BR (occurrence: BR)
  Receive Date: 20160505
  Receipt Date: 20170501
  Transmission Date: 20170830
  Serious: Yes (Death, Life-Threatening)
  Sender: FDA-Public Use
  Company Number: BR-B.I. PHARMACEUTICALS,INC./RIDGEFIELD-2016-BI-25057BR

PATIENT
  Age: 69 Year
  Sex: Male
  Weight: 84 kg

DRUGS (5)
  1. SUPRADYN [Concomitant]
     Active Substance: ASCORBIC ACID\MINERALS\VITAMINS
     Indication: DRUG THERAPY
     Route: 048
     Dates: start: 201601
  2. MAREVAN [Concomitant]
     Active Substance: WARFARIN SODIUM
     Indication: MEDICAL DEVICE IMPLANTATION
     Dosage: 5MG IN ONE DAY AND 7.5MG ON THE NEXT DAY (ALTERNATE)
     Route: 048
     Dates: start: 2006
  3. OFEV [Suspect]
     Active Substance: NINTEDANIB
     Indication: IDIOPATHIC PULMONARY FIBROSIS
     Route: 048
     Dates: start: 20160406, end: 20160424
  4. PREDSIN [Concomitant]
     Indication: FATIGUE
     Route: 048
     Dates: start: 201601
  5. MERITOR [Concomitant]
     Active Substance: GLIMEPIRIDE\METFORMIN
     Indication: BLOOD CHOLESTEROL ABNORMAL
     Route: 048
     Dates: start: 2014

REACTIONS (4)
  - Idiopathic pulmonary fibrosis [Fatal]
  - Cardio-respiratory arrest [Fatal]
  - Respiratory failure [Fatal]
  - Drug ineffective [Not Recovered/Not Resolved]

NARRATIVE: CASE EVENT DATE: 20160406
